FAERS Safety Report 8334759-8 (Version None)
Quarter: 2012Q2

REPORT INFORMATION
  Report Type: 
  Country: None (occurrence: None)
  Receive Date: 20120503
  Receipt Date: 20120424
  Transmission Date: 20120825
  Serious: Yes (Hospitalization, Other)
  Sender: FDA-Public Use
  Company Number: US-ASTRAZENECA-2012SE25996

PATIENT
  Age: 45 Year
  Sex: Male

DRUGS (1)
  1. NEXIUM [Suspect]
     Route: 048

REACTIONS (5)
  - MALAISE [None]
  - BLOOD GLUCOSE ABNORMAL [None]
  - INTENTIONAL DRUG MISUSE [None]
  - VOMITING [None]
  - DEHYDRATION [None]
